FAERS Safety Report 10152805 (Version 2)
Quarter: 2014Q2

REPORT INFORMATION
  Report Type: Report from Study
  Country: DE (occurrence: DE)
  Receive Date: 20140505
  Receipt Date: 20140509
  Transmission Date: 20141212
  Serious: Yes (Other)
  Sender: FDA-Public Use
  Company Number: PHHY2014DE053380

PATIENT
  Sex: Male
  Weight: 89 kg

DRUGS (4)
  1. GLYCOPYRRONIUM BROMIDE [Suspect]
     Indication: CHRONIC OBSTRUCTIVE PULMONARY DISEASE
     Dosage: 44 UG, QD
     Route: 055
     Dates: start: 20130514, end: 20140227
  2. ULTIBRO BREEZHALER [Suspect]
     Indication: CHRONIC OBSTRUCTIVE PULMONARY DISEASE
     Dosage: 1 DF, QD
     Route: 055
     Dates: start: 20140227
  3. ASS [Concomitant]
  4. BERODUAL [Concomitant]

REACTIONS (2)
  - Sleep apnoea syndrome [Recovered/Resolved]
  - Forced expiratory volume decreased [Recovered/Resolved]
